FAERS Safety Report 16635801 (Version 1)
Quarter: 2019Q3

REPORT INFORMATION
  Report Type: Spontaneous
  Country: US (occurrence: US)
  Receive Date: 20190613
  Receipt Date: 20190613
  Transmission Date: 20191004
  Serious: No
  Sender: FDA-Public Use
  Company Number: None

PATIENT
  Age: 62 Year
  Sex: Female

DRUGS (2)
  1. SILDENAFIL TAB 20 MG [Suspect]
     Active Substance: SILDENAFIL
     Dates: start: 201602
  2. MYCOPHENOLATE [Suspect]
     Active Substance: MYCOPHENOLIC ACID

REACTIONS (2)
  - Dizziness [None]
  - Therapy cessation [None]

NARRATIVE: CASE EVENT DATE: 20190613
